FAERS Safety Report 10139555 (Version 2)
Quarter: 2015Q1

REPORT INFORMATION
  Report Type: Other
  Country: US (occurrence: US)
  Receive Date: 20140429
  Receipt Date: 20150224
  Transmission Date: 20150720
  Serious: Yes (Hospitalization, Other)
  Sender: FDA-Public Use
  Company Number: US-GSKPPD-2014GSK040154

PATIENT
  Age: 72 Year
  Sex: Male

DRUGS (5)
  1. FUROSEMIDE. [Concomitant]
     Active Substance: FUROSEMIDE
  2. ENALAPRIL [Concomitant]
     Active Substance: ENALAPRIL
  3. IMDUR [Concomitant]
     Active Substance: ISOSORBIDE MONONITRATE
  4. AVANDIA [Suspect]
     Active Substance: ROSIGLITAZONE MALEATE
     Indication: DIABETES MELLITUS
     Dosage: AVANDIA WAS NOT LISTED AMONG THE PATIENTS RECORDS REVIEWED.
     Route: 048
  5. COREG [Concomitant]
     Active Substance: CARVEDILOL

REACTIONS (3)
  - Myocardial infarction [Unknown]
  - Cardiac failure congestive [Recovered/Resolved]
  - Ischaemic cardiomyopathy [Recovered/Resolved]

NARRATIVE: CASE EVENT DATE: 20080128
